FAERS Safety Report 9721684 (Version 2)
Quarter: 2014Q1

REPORT INFORMATION
  Report Type: Spontaneous
  Country: US (occurrence: US)
  Receive Date: 20131201
  Receipt Date: 20140228
  Transmission Date: 20141002
  Serious: No
  Sender: FDA-Public Use
  Company Number: US-ABBVIE-13P-163-1169139-00

PATIENT
  Age: 74 Year
  Sex: Male
  Weight: 86.26 kg

DRUGS (5)
  1. ANDROGEL [Suspect]
     Indication: BLOOD TESTOSTERONE DECREASED
     Dates: start: 201306, end: 201307
  2. ANDROGEL [Suspect]
     Dates: start: 201310, end: 201311
  3. WARFARIN [Concomitant]
     Indication: ATRIAL FIBRILLATION
  4. SLO-NIACIN [Concomitant]
     Indication: BLOOD CHOLESTEROL INCREASED
  5. DIGOXIN [Concomitant]
     Indication: ATRIAL FIBRILLATION

REACTIONS (2)
  - Erythema [Recovered/Resolved]
  - Skin burning sensation [Recovered/Resolved]
